FAERS Safety Report 5583995-2 (Version None)
Quarter: 2008Q1

REPORT INFORMATION
  Report Type: 
  Country: None (occurrence: None)
  Receive Date: 20080103
  Receipt Date: 20080103
  Transmission Date: 20080703
  Serious: Yes (Life-Threatening, Hospitalization)
  Sender: FDA-Public Use
  Company Number: None

PATIENT
  Age: 36 Year
  Sex: Female
  Weight: 61 kg

DRUGS (1)
  1. AVELOX [Suspect]
     Indication: PNEUMONIA
     Dosage: 400MG DAILY PO
     Route: 048

REACTIONS (7)
  - DIARRHOEA [None]
  - DYSPHAGIA [None]
  - HYPOTENSION [None]
  - NAUSEA [None]
  - PRURITUS [None]
  - SWELLING FACE [None]
  - VOMITING [None]
